FAERS Safety Report 17819214 (Version 1)
Quarter: 2020Q2

REPORT INFORMATION
  Report Type: Spontaneous
  Country: KR (occurrence: KR)
  Receive Date: 20200523
  Receipt Date: 20200523
  Transmission Date: 20200714
  Serious: Yes (Other)
  Sender: FDA-Public Use
  Company Number: KR-ACCORD-182654

PATIENT
  Age: 27 Year
  Sex: Female

DRUGS (3)
  1. VINBLASTINE [Suspect]
     Active Substance: VINBLASTINE
     Indication: PERITONEAL MESOTHELIOMA MALIGNANT
  2. CISPLATIN. [Suspect]
     Active Substance: CISPLATIN
     Indication: PERITONEAL MESOTHELIOMA MALIGNANT
  3. MITOMYCIN. [Suspect]
     Active Substance: MITOMYCIN
     Indication: PERITONEAL MESOTHELIOMA MALIGNANT

REACTIONS (1)
  - Pancytopenia [Unknown]
